FAERS Safety Report 6900222-1 (Version None)
Quarter: 2010Q3

REPORT INFORMATION
  Report Type: 
  Country: None (occurrence: None)
  Receive Date: 20100803
  Receipt Date: 20100720
  Transmission Date: 20110219
  Serious: Yes (Death, Other)
  Sender: FDA-Public Use
  Company Number: US-ROCHE-709580

PATIENT
  Sex: Male
  Weight: 56.8 kg

DRUGS (29)
  1. GANCICLOVIR SODIUM [Suspect]
     Indication: PRODUCT USED FOR UNKNOWN INDICATION
     Route: 042
     Dates: start: 20100226
  2. MYCOPHENOLATE MOFETIL [Suspect]
     Route: 048
     Dates: start: 20100219
  3. SULFAMETHOXAZOLE AND TRIMETHOPRIM [Concomitant]
     Route: 048
     Dates: start: 20100225
  4. SIMETHICONE [Concomitant]
     Dosage: DOSE: 120 MG; FREQUENCY: AS REQUIRED
     Route: 048
     Dates: start: 20100121
  5. PREDNISONE [Concomitant]
     Route: 048
     Dates: start: 20100226
  6. ZOFRAN [Concomitant]
     Indication: VOMITING
     Route: 042
     Dates: start: 20091115
  7. LINEZOLID [Concomitant]
     Dosage: ROUTE: PER TUBE
     Dates: start: 20010301
  8. LIDOCAINE [Concomitant]
     Route: 061
     Dates: start: 20091228
  9. XOPENEX [Concomitant]
     Dosage: STRENGTH: 0.62 MG/2ML NEBULISED EVERY 6 HOUR
     Dates: start: 20100124
  10. ATROVENT [Concomitant]
     Dosage: STRENGTH: 0.5 MG/2.5ML; NEBULISED AS NECESSARY
     Dates: start: 20091120
  11. NOVOLOG [Concomitant]
     Dates: start: 20100203
  12. COLACE [Concomitant]
     Indication: CONSTIPATION
     Dates: start: 20100222
  13. CEFOTAXIME SODIUM [Concomitant]
     Route: 042
     Dates: start: 20100302
  14. DOPAMIX [Concomitant]
     Dosage: DOSE: 800 MG/250 MG
     Dates: start: 20100227
  15. LIDOCAINE [Concomitant]
     Route: 055
     Dates: start: 20091216
  16. DIPRIVAN [Concomitant]
  17. DIPRIVAN [Concomitant]
     Dates: start: 20091211
  18. LOPRESSOR [Concomitant]
     Indication: ATRIAL FIBRILLATION
     Dosage: OTHER INDICATION: ATRIAL FLUTTER
     Route: 042
     Dates: start: 20091213
  19. BUMEX [Concomitant]
  20. BUMEX [Concomitant]
     Dates: start: 20091214
  21. CELEXA [Concomitant]
     Indication: DEPRESSION
     Dates: start: 20091214
  22. LEVEMIR [Concomitant]
     Dates: start: 20091214
  23. LOVENOX [Concomitant]
     Dates: start: 20091214
  24. PROGRAF [Concomitant]
  25. PROGRAF [Concomitant]
     Dates: start: 20100106
  26. CLONIDINE [Concomitant]
     Dates: start: 20100109
  27. ZOSYN [Concomitant]
     Dates: start: 20100101
  28. NEUPOGEN [Concomitant]
  29. CAPTOPRIL [Concomitant]
     Dates: end: 20091221

REACTIONS (5)
  - CYTOMEGALOVIRUS INFECTION [None]
  - DIARRHOEA [None]
  - GASTROINTESTINAL HAEMORRHAGE [None]
  - SEPSIS [None]
  - TRANSPLANT FAILURE [None]
